FAERS Safety Report 20126283 (Version 3)
Quarter: 2022Q1

REPORT INFORMATION
  Report Type: Spontaneous
  Country: US (occurrence: US)
  Receive Date: 20211129
  Receipt Date: 20220214
  Transmission Date: 20220423
  Serious: No
  Sender: FDA-Public Use
  Company Number: US-PFIZER INC-202101587680

PATIENT
  Age: 85 Year
  Sex: Female

DRUGS (1)
  1. CYTOMEL [Suspect]
     Active Substance: LIOTHYRONINE SODIUM
     Dosage: 25 MCG

REACTIONS (3)
  - Intentional product misuse [Unknown]
  - Feeling abnormal [Unknown]
  - Mobility decreased [Unknown]
